FAERS Safety Report 8303495-6 (Version None)
Quarter: 2012Q2

REPORT INFORMATION
  Report Type: 
  Country: None (occurrence: None)
  Receive Date: 20120418
  Receipt Date: 20120413
  Transmission Date: 20120825
  Serious: Yes (Hospitalization, Other)
  Sender: FDA-Public Use
  Company Number: 2010SP062564

PATIENT
  Age: 28 Year
  Sex: Female
  Weight: 131.5431 kg

DRUGS (1)
  1. NUVARING [Suspect]
     Indication: CONTRACEPTION
     Dates: start: 20040101, end: 20080101

REACTIONS (56)
  - MUSCLE TWITCHING [None]
  - IRRITABLE BOWEL SYNDROME [None]
  - ANXIETY [None]
  - BLOOD CHOLESTEROL INCREASED [None]
  - WEIGHT INCREASED [None]
  - HEADACHE [None]
  - PAIN IN JAW [None]
  - HYPERTENSION [None]
  - MENTAL DISORDER [None]
  - MIGRAINE [None]
  - UTERINE LEIOMYOMA [None]
  - DYSTHYMIC DISORDER [None]
  - CERVICAL DYSPLASIA [None]
  - BRONCHITIS [None]
  - OVARIAN CYST [None]
  - FEELING ABNORMAL [None]
  - LIGAMENT SPRAIN [None]
  - LOSS OF CONSCIOUSNESS [None]
  - DEPRESSION [None]
  - SINUSITIS [None]
  - HYPOAESTHESIA ORAL [None]
  - OTITIS MEDIA [None]
  - INCORRECT DRUG ADMINISTRATION DURATION [None]
  - GASTROENTERITIS [None]
  - OEDEMA PERIPHERAL [None]
  - SUBCUTANEOUS ABSCESS [None]
  - CERVICITIS HUMAN PAPILLOMA VIRUS [None]
  - INJURY [None]
  - EMOTIONAL DISORDER [None]
  - PNEUMONIA [None]
  - HYPERLIPIDAEMIA [None]
  - MENSTRUATION IRREGULAR [None]
  - MEMORY IMPAIRMENT [None]
  - HYPERHOMOCYSTEINAEMIA [None]
  - JOINT STABILISATION [None]
  - ENDOCRINE TOXICITY [None]
  - SUICIDAL IDEATION [None]
  - TENSION HEADACHE [None]
  - UTERINE ENLARGEMENT [None]
  - CONFUSIONAL STATE [None]
  - TINEA PEDIS [None]
  - SLEEP APNOEA SYNDROME [None]
  - TOOTH ABSCESS [None]
  - INSOMNIA [None]
  - INTERVERTEBRAL DISC DEGENERATION [None]
  - DERMATITIS CONTACT [None]
  - IMMOBILE [None]
  - DEEP VEIN THROMBOSIS [None]
  - PULMONARY EMBOLISM [None]
  - COGNITIVE DISORDER [None]
  - DEVICE EXPULSION [None]
  - MUSCULOSKELETAL PAIN [None]
  - OSTEOARTHRITIS [None]
  - ECZEMA [None]
  - HYPOTENSION [None]
  - CELLULITIS [None]
